FAERS Safety Report 5664221-2 (Version None)
Quarter: 2008Q1

REPORT INFORMATION
  Report Type: 
  Country: None (occurrence: None)
  Receive Date: 20080314
  Receipt Date: 20080305
  Transmission Date: 20080703
  Serious: Yes (Hospitalization, Other)
  Sender: FDA-Public Use
  Company Number: DE-JNJFOC-20080200828

PATIENT
  Age: 65 Year
  Sex: Female

DRUGS (7)
  1. REMICADE [Suspect]
     Route: 042
  2. REMICADE [Suspect]
     Indication: SPONDYLOARTHROPATHY
     Route: 042
  3. ENBREL [Concomitant]
  4. MOLSIDOMIN [Concomitant]
  5. SIMVAHEXAL [Concomitant]
  6. FOSAMAX [Concomitant]
  7. TRAMAL [Concomitant]

REACTIONS (1)
  - RECTAL CANCER [None]
